FAERS Safety Report 17720837 (Version 1)
Quarter: 2020Q2

REPORT INFORMATION
  Report Type: Spontaneous
  Country: US (occurrence: US)
  Receive Date: 20200428
  Receipt Date: 20200428
  Transmission Date: 20200714
  Serious: No
  Sender: FDA-Public Use
  Company Number: US-ROCHE-2536892

PATIENT

DRUGS (2)
  1. AVASTIN [Suspect]
     Active Substance: BEVACIZUMAB
     Indication: OVARIAN CANCER
     Route: 065
  2. TAXOL [Concomitant]
     Active Substance: PACLITAXEL

REACTIONS (3)
  - Cardiac disorder [Unknown]
  - Tooth disorder [Unknown]
  - Fall [Unknown]
